FAERS Safety Report 23667167 (Version 1)
Quarter: 2024Q1

REPORT INFORMATION
  Report Type: Other
  Country: JP (occurrence: JP)
  Receive Date: 20240325
  Receipt Date: 20240325
  Transmission Date: 20240410
  Serious: Yes (Other)
  Sender: FDA-Public Use
  Company Number: JP-ALVOGEN-2024093264

PATIENT
  Age: 65 Year
  Sex: Male

DRUGS (4)
  1. MELPHALAN [Suspect]
     Active Substance: MELPHALAN
     Indication: Peripheral T-cell lymphoma unspecified
     Dosage: LEED PRECONDITIONING REGIMEN?130 MG/M2
  2. CYCLOPHOSPHAMIDE [Suspect]
     Active Substance: CYCLOPHOSPHAMIDE
     Indication: Peripheral T-cell lymphoma unspecified
     Dosage: LEED PRECONDITIONING REGIMEN?60 MG/KG FOR 2 DAYS (DAY-4 TO DAY -3)
  3. ETOPOSIDE [Suspect]
     Active Substance: ETOPOSIDE
     Indication: Peripheral T-cell lymphoma unspecified
     Dosage: LEED PRECONDITIONING REGIMEN?500 MG/M 2  OF ETOPOSIDE FOR 3 DAYS (DAY -4 TO DAY -2)
  4. INSULIN NOS [Concomitant]
     Active Substance: INSULIN NOS
     Indication: Diabetes mellitus

REACTIONS (2)
  - Myelodysplastic syndrome [Recovering/Resolving]
  - Off label use [Unknown]
